FAERS Safety Report 25934113 (Version 2)
Quarter: 2025Q4

REPORT INFORMATION
  Report Type: Report from Study
  Country: US (occurrence: US)
  Receive Date: 20251017
  Receipt Date: 20251024
  Transmission Date: 20260117
  Serious: No
  Sender: MALLINCKRODT
  Company Number: US-MALLINCKRODT-MNK202506218

PATIENT
  Age: 30 Year
  Sex: Female

DRUGS (2)
  1. CORTICOTROPIN [Suspect]
     Active Substance: CORTICOTROPIN
     Indication: Cyclitis
     Dosage: 80 UNITS
     Route: 058
     Dates: start: 20250928
  2. LUMIGAN [Concomitant]
     Active Substance: BIMATOPROST
     Dosage: UNKNOWN

REACTIONS (5)
  - Nervousness [Unknown]
  - Needle track marks [Recovering/Resolving]
  - Mood altered [Unknown]
  - Injection site pain [Unknown]
  - Injection site bruising [Recovered/Resolved]

NARRATIVE: CASE EVENT DATE: 20250101
